FAERS Safety Report 5217493-2 (Version None)
Quarter: 2006Q4

REPORT INFORMATION
  Report Type: 
  Country: None (occurrence: None)
  Receive Date: 20061130
  Receipt Date: 20060626
  Transmission Date: 20070319
  Serious: Yes (Hospitalization)
  Sender: FDA-Public Use
  Company Number: US200603000459

PATIENT
  Age: 41 Year
  Sex: Female
  Weight: 72.6 kg

DRUGS (5)
  1. ZYPREXA [Suspect]
     Dosage: SEE IMAGE
     Dates: start: 20020101, end: 20020901
  2. ZYPREXA [Suspect]
     Dosage: SEE IMAGE
     Dates: start: 20020901, end: 20021101
  3. ZYPREXA [Suspect]
     Dosage: SEE IMAGE
     Dates: start: 20021101, end: 20030101
  4. ZYPREXA [Suspect]
     Dosage: SEE IMAGE
     Dates: start: 20030123
  5. ZOLOFT [Concomitant]

REACTIONS (9)
  - DIABETES MELLITUS [None]
  - DIABETES MELLITUS INSULIN-DEPENDENT [None]
  - DIABETIC KETOACIDOSIS [None]
  - HYPERPHAGIA [None]
  - PANCREATITIS [None]
  - POLYDIPSIA [None]
  - POLYURIA [None]
  - VISION BLURRED [None]
  - WEIGHT INCREASED [None]
